FAERS Safety Report 20792121 (Version 2)
Quarter: 2022Q2

REPORT INFORMATION
  Report Type: Report from Study
  Country: ES (occurrence: ES)
  Receive Date: 20220505
  Receipt Date: 20220506
  Transmission Date: 20220721
  Serious: Yes (Hospitalization)
  Sender: FDA-Public Use
  Company Number: ES-009507513-1509ESP010183

PATIENT
  Age: 61 Year
  Sex: Male
  Weight: 63 kg

DRUGS (21)
  1. PEMBROLIZUMAB [Suspect]
     Active Substance: PEMBROLIZUMAB
     Indication: Squamous cell carcinoma of head and neck
     Dosage: 200 MG, Q3W
     Route: 042
     Dates: start: 20150814, end: 20150814
  2. PEMBROLIZUMAB [Suspect]
     Active Substance: PEMBROLIZUMAB
     Dosage: 200 MG, Q3W
     Route: 042
     Dates: start: 20150904, end: 20150904
  3. PEMBROLIZUMAB [Suspect]
     Active Substance: PEMBROLIZUMAB
     Dosage: 200 MG, Q3W
     Route: 042
     Dates: start: 20151016
  4. CISPLATIN [Suspect]
     Active Substance: CISPLATIN
     Indication: Squamous cell carcinoma of head and neck
     Dosage: UNK UNK, Q3W
     Route: 042
     Dates: start: 20150814, end: 20150814
  5. CISPLATIN [Suspect]
     Active Substance: CISPLATIN
     Dosage: UNK UNK, Q3W
     Route: 042
     Dates: start: 20150904, end: 20150904
  6. CISPLATIN [Suspect]
     Active Substance: CISPLATIN
     Dosage: UNK UNK, Q3W
     Route: 042
     Dates: start: 20151016
  7. FLUOROURACIL [Suspect]
     Active Substance: FLUOROURACIL
     Indication: Squamous cell carcinoma of head and neck
     Dosage: UNK UNK, Q3W
     Route: 042
     Dates: start: 20150814, end: 20150817
  8. FLUOROURACIL [Suspect]
     Active Substance: FLUOROURACIL
     Dosage: UNK UNK, Q3W
     Route: 042
     Dates: start: 20150904, end: 20150907
  9. FLUOROURACIL [Suspect]
     Active Substance: FLUOROURACIL
     Dosage: UNK UNK, Q3W
     Route: 042
     Dates: start: 20151016
  10. ALLOPURINOL [Concomitant]
     Active Substance: ALLOPURINOL
     Indication: Hyperuricaemia
     Dosage: TOTAL DAILY DOSE 100 MG (FREQUENCY QOD)
     Route: 048
     Dates: start: 20150731, end: 20151112
  11. SIMVASTATIN [Concomitant]
     Active Substance: SIMVASTATIN
     Indication: Hypercholesterolaemia
     Dosage: 10 MG, QD
     Route: 048
     Dates: start: 20150731, end: 20151112
  12. ESOMEPRAZOLE [Concomitant]
     Active Substance: ESOMEPRAZOLE
     Indication: Prophylaxis
     Dosage: 20 MG, QD
     Route: 048
     Dates: start: 20150731, end: 20150924
  13. FENTANYL [Concomitant]
     Active Substance: FENTANYL
     Indication: Tumour pain
     Dosage: TOTAL DAILY DOSE 12 MICROGRAM (FREQUENCY QOD); FORMULATION: PATCH
     Route: 061
     Dates: start: 20150731, end: 20150924
  14. MORPHINE [Concomitant]
     Active Substance: MORPHINE
     Indication: Tumour pain
     Dosage: 10 MG, PRN
     Route: 048
     Dates: start: 20150731, end: 20160216
  15. DIPYRONE [Concomitant]
     Active Substance: DIPYRONE
     Indication: Tumour pain
     Dosage: 575 MG, PRN
     Route: 048
     Dates: start: 20150731, end: 20150924
  16. ABSTRAL [Concomitant]
     Active Substance: FENTANYL CITRATE
     Indication: Tumour pain
     Dosage: 100 MICROGRAM, PRN
     Route: 060
     Dates: start: 20150819, end: 20150903
  17. MYCOSTATIN [Concomitant]
     Active Substance: NYSTATIN
     Indication: Mucosal inflammation
     Dosage: 100 U, FORMULATION: BUCCAL SOLUTION
     Route: 002
     Dates: start: 20150903, end: 20150909
  18. FOSAPREPITANT [Concomitant]
     Active Substance: FOSAPREPITANT
     Indication: Premedication
     Dosage: 150 MG, ONCE
     Route: 042
     Dates: start: 20150814, end: 20151228
  19. ONDANSETRON [Concomitant]
     Active Substance: ONDANSETRON
     Indication: Premedication
     Dosage: 16 MILLIGRAM, ONCE
     Route: 042
     Dates: start: 20150814, end: 20151228
  20. DEXAMETHASONE [Concomitant]
     Active Substance: DEXAMETHASONE
     Indication: Premedication
     Dosage: 4 MG, ONCE
     Route: 042
     Dates: start: 20150814, end: 20151228
  21. METOCLOPRAMIDE [Concomitant]
     Active Substance: METOCLOPRAMIDE
     Indication: Prophylaxis of nausea and vomiting
     Dosage: 30 MG, PRN
     Route: 048
     Dates: start: 20150814, end: 20151224

REACTIONS (1)
  - Hypertransaminasaemia [Recovered/Resolved]

NARRATIVE: CASE EVENT DATE: 20150909
